FAERS Safety Report 17134119 (Version 3)
Quarter: 2020Q1

REPORT INFORMATION
  Report Type: Spontaneous
  Country: JP (occurrence: JP)
  Receive Date: 20191210
  Receipt Date: 20200207
  Transmission Date: 20200409
  Serious: Yes (Other)
  Sender: FDA-Public Use
  Company Number: JP-GLAXOSMITHKLINE-JP2019JPN223040

PATIENT
  Sex: Male
  Weight: 60 kg

DRUGS (3)
  1. ALLERMIST [Suspect]
     Active Substance: FLUTICASONE FUROATE
     Indication: CHRONIC EOSINOPHILIC RHINOSINUSITIS
     Dosage: 110 ?G
     Route: 045
     Dates: start: 20190525, end: 20191122
  2. ALLERMIST [Suspect]
     Active Substance: FLUTICASONE FUROATE
     Indication: RHINITIS ALLERGIC
  3. MONTELUKAST OD TABLET [Concomitant]
     Dosage: 10 MG, 1D
     Dates: start: 20190118

REACTIONS (3)
  - Palpitations [Unknown]
  - Arrhythmia [Recovered/Resolved]
  - Circumstance or information capable of leading to medication error [Unknown]

NARRATIVE: CASE EVENT DATE: 2019
